FAERS Safety Report 8170145-1 (Version None)
Quarter: 2012Q1

REPORT INFORMATION
  Report Type: 
  Country: None (occurrence: None)
  Receive Date: 20120228
  Receipt Date: 20120220
  Transmission Date: 20120608
  Serious: Yes (Other)
  Sender: FDA-Public Use
  Company Number: PHHY2012BE012046

PATIENT
  Sex: Male

DRUGS (6)
  1. ASPIRIN [Concomitant]
  2. ZOLEDRONOC ACID [Suspect]
     Indication: OSTEOPOROSIS
     Dosage: 5 MG, UNK
     Route: 042
     Dates: start: 20100913
  3. PERINDOPRIL ERBUMINE [Concomitant]
  4. LIPITOR [Concomitant]
  5. BISOPROLOL FUMARATE [Concomitant]
  6. SIMVASTATIN [Concomitant]

REACTIONS (2)
  - MYOCARDIAL INFARCTION [None]
  - INJECTION SITE HAEMATOMA [None]
